FAERS Safety Report 16675906 (Version 1)
Quarter: 2019Q3

REPORT INFORMATION
  Report Type: Spontaneous
  Country: US (occurrence: US)
  Receive Date: 20190807
  Receipt Date: 20190807
  Transmission Date: 20191004
  Serious: No
  Sender: FDA-Public Use
  Company Number: US-ASTRAZENECA-2019SF08683

PATIENT
  Age: 825 Month
  Sex: Male
  Weight: 56.7 kg

DRUGS (4)
  1. ALBUTEROL/IPRATROPIUM NEBULIZER SOL [Concomitant]
     Indication: CHRONIC OBSTRUCTIVE PULMONARY DISEASE
     Route: 065
  2. OXYGEN. [Concomitant]
     Active Substance: OXYGEN
     Dosage: 2.0L/MIN CONTINUOUSLY
     Route: 055
     Dates: start: 201711
  3. DALIRESP [Suspect]
     Active Substance: ROFLUMILAST
     Indication: CHRONIC OBSTRUCTIVE PULMONARY DISEASE
     Route: 048
     Dates: start: 201906
  4. COMBIVENT [Concomitant]
     Active Substance: ALBUTEROL SULFATE\IPRATROPIUM BROMIDE
     Indication: RESPIRATION ABNORMAL
     Route: 055

REACTIONS (2)
  - Loss of personal independence in daily activities [Unknown]
  - Dyspnoea [Not Recovered/Not Resolved]
